FAERS Safety Report 4363489-2 (Version None)
Quarter: 2004Q2

REPORT INFORMATION
  Report Type: 
  Country: None (occurrence: None)
  Receive Date: 20040517
  Receipt Date: 20040323
  Transmission Date: 20050107
  Serious: No
  Sender: FDA-Public Use
  Company Number: S04-USA-01617-01

PATIENT
  Age: 80 Year
  Sex: Female

DRUGS (14)
  1. NAMENDA [Suspect]
     Indication: DEMENTIA
     Dosage: 15 MG QD PO
     Route: 048
     Dates: start: 20040213, end: 20040225
  2. NAMENDA [Suspect]
     Indication: DEMENTIA ALZHEIMER'S TYPE
     Dosage: 15 MG QD PO
     Route: 048
     Dates: start: 20040213, end: 20040225
  3. NAMENDA [Suspect]
     Indication: DEMENTIA
     Dosage: 5 MG QD PO
     Route: 048
     Dates: start: 20040130, end: 20040205
  4. NAMENDA [Suspect]
     Indication: DEMENTIA ALZHEIMER'S TYPE
     Dosage: 5 MG QD PO
     Route: 048
     Dates: start: 20040130, end: 20040205
  5. NAMENDA [Suspect]
     Indication: DEMENTIA
     Dosage: 10 MG QD PO
     Route: 048
     Dates: start: 20040206, end: 20040212
  6. NAMENDA [Suspect]
     Indication: DEMENTIA ALZHEIMER'S TYPE
     Dosage: 10 MG QD PO
     Route: 048
     Dates: start: 20040206, end: 20040212
  7. ARICEPT [Concomitant]
  8. IRON [Concomitant]
  9. FOSAMAX [Concomitant]
  10. MELATONIN [Concomitant]
  11. NORVASC [Concomitant]
  12. CITRACAL (CALCIUM CITRATE) [Concomitant]
  13. RANITIDINE [Concomitant]
  14. VITAMIN E [Concomitant]

REACTIONS (1)
  - MUSCLE CONTRACTIONS INVOLUNTARY [None]
